FAERS Safety Report 6134637-9 (Version None)
Quarter: 2009Q1

REPORT INFORMATION
  Report Type: 
  Country: None (occurrence: None)
  Receive Date: 20090327
  Receipt Date: 20090318
  Transmission Date: 20090719
  Serious: Yes (Other)
  Sender: FDA-Public Use
  Company Number: PHHY2009JP09925

PATIENT

DRUGS (1)
  1. COMTAN [Suspect]
     Route: 048

REACTIONS (1)
  - OCCULT BLOOD [None]
